FAERS Safety Report 5226719-0 (Version None)
Quarter: 2007Q1

REPORT INFORMATION
  Report Type: 
  Country: None (occurrence: None)
  Receive Date: 20070126
  Receipt Date: 20070116
  Transmission Date: 20070707
  Serious: Yes (Death)
  Sender: FDA-Public Use
  Company Number: HQWYE547320JUN05

PATIENT
  Age: 53 Year
  Sex: Male

DRUGS (2)
  1. EFFEXOR [Suspect]
     Indication: ANXIETY
  2. LEXAPRO [Suspect]
     Indication: ANXIETY

REACTIONS (8)
  - ANXIETY [None]
  - COMPLETED SUICIDE [None]
  - GUN SHOT WOUND [None]
  - MENTAL IMPAIRMENT [None]
  - NERVOUSNESS [None]
  - PRESYNCOPE [None]
  - RESTLESSNESS [None]
  - TREMOR [None]
